FAERS Safety Report 25958892 (Version 2)
Quarter: 2025Q4

REPORT INFORMATION
  Report Type: Report from Study
  Country: CA (occurrence: CA)
  Receive Date: 20251025
  Receipt Date: 20251125
  Transmission Date: 20260117
  Serious: Yes (Other)
  Sender: ALEXION PHARMACEUTICALS
  Company Number: CA-AstraZeneca-CH-00977014A

PATIENT
  Sex: Female

DRUGS (1)
  1. OLAPARIB [Suspect]
     Active Substance: OLAPARIB
     Indication: Ovarian cancer
     Dosage: 300 UNK, BID

REACTIONS (5)
  - Cardiac failure congestive [Unknown]
  - Haemoglobin abnormal [Unknown]
  - Nausea [Unknown]
  - Bone pain [Unknown]
  - Lethargy [Unknown]
